FAERS Safety Report 19920511 (Version 1)
Quarter: 2021Q4

REPORT INFORMATION
  Report Type: Spontaneous
  Country: GB (occurrence: GB)
  Receive Date: 20211005
  Receipt Date: 20211005
  Transmission Date: 20220304
  Serious: Yes (Other)
  Sender: FDA-Public Use
  Company Number: None

PATIENT
  Age: 28 Year
  Sex: Female
  Weight: 46 kg

DRUGS (3)
  1. SUMATRIPTAN [Suspect]
     Active Substance: SUMATRIPTAN
     Indication: Rash
     Dosage: 1 TABLET AT THE, 50MG
     Route: 048
     Dates: start: 20210401
  2. EMLA [Concomitant]
     Active Substance: LIDOCAINE\PRILOCAINE
     Dosage: AS DIRECTED
     Dates: start: 20210413
  3. HYDROCORTISONE [Concomitant]
     Active Substance: HYDROCORTISONE
     Dosage: USE SPARINGLY T
     Dates: start: 20210316

REACTIONS (4)
  - Raynaud^s phenomenon [Recovered/Resolved]
  - Rash [Unknown]
  - Peripheral coldness [Unknown]
  - Skin discolouration [Unknown]

NARRATIVE: CASE EVENT DATE: 20210409
